FAERS Safety Report 23201381 (Version 2)
Quarter: 2024Q1

REPORT INFORMATION
  Report Type: Spontaneous
  Country: US (occurrence: US)
  Receive Date: 20231118
  Receipt Date: 20240207
  Transmission Date: 20240410
  Serious: No
  Sender: FDA-Public Use
  Company Number: US-SA-SAC20231111000292

PATIENT
  Age: 7 Year
  Sex: Female

DRUGS (1)
  1. DUPIXENT [Suspect]
     Active Substance: DUPILUMAB
     Indication: Dermatitis allergic
     Dosage: 300 MG, Q4W
     Route: 058

REACTIONS (8)
  - Rash pruritic [Unknown]
  - Eyelid skin dryness [Unknown]
  - Dry skin [Unknown]
  - Erythema [Unknown]
  - Erythema of eyelid [Unknown]
  - Skin exfoliation [Unknown]
  - Dry eye [Unknown]
  - Oral herpes [Unknown]
